FAERS Safety Report 19982752 (Version 1)
Quarter: 2021Q4

REPORT INFORMATION
  Report Type: Spontaneous
  Country: US (occurrence: US)
  Receive Date: 20211020
  Receipt Date: 20211020
  Transmission Date: 20220303
  Serious: Yes (Death, Hospitalization)
  Sender: FDA-Public Use
  Company Number: None

PATIENT
  Age: 54 Year
  Sex: Female
  Weight: 49.9 kg

DRUGS (1)
  1. PEMBROLIZUMAB [Suspect]
     Active Substance: PEMBROLIZUMAB
     Dates: end: 20210902

REACTIONS (4)
  - Acidosis [None]
  - Sepsis [None]
  - Spinal compression fracture [None]
  - Cardio-respiratory arrest [None]

NARRATIVE: CASE EVENT DATE: 20210912
